FAERS Safety Report 25417516 (Version 1)
Quarter: 2025Q2

REPORT INFORMATION
  Report Type: Spontaneous
  Country: US (occurrence: None)
  Receive Date: 20250609
  Receipt Date: 20250609
  Transmission Date: 20250717
  Serious: Yes (Death)
  Sender: FDA-CTU
  Company Number: None

PATIENT
  Age: 73 Year
  Sex: Male

DRUGS (20)
  1. LAMIVUDINE [Suspect]
     Active Substance: LAMIVUDINE
     Indication: HIV infection
     Dosage: FREQUENCY : DAILY;?
     Route: 048
  2. TIVICAY [Suspect]
     Active Substance: DOLUTEGRAVIR SODIUM
     Indication: HIV infection
     Dosage: FREQUENCY : DAILY;?
     Route: 048
  3. Sulfa/trim [Concomitant]
  4. ALBUTEROL SULFATE [Concomitant]
     Active Substance: ALBUTEROL SULFATE
  5. LORAZEPAM [Concomitant]
     Active Substance: LORAZEPAM
  6. ALBUTEROL\IPRATROPIUM [Suspect]
     Active Substance: ALBUTEROL\IPRATROPIUM
  7. PROMETHAZINE [Suspect]
     Active Substance: PROMETHAZINE HYDROCHLORIDE
  8. MORPHINE SULFATE [Concomitant]
     Active Substance: MORPHINE SULFATE
  9. HALOPERIDOL [Concomitant]
     Active Substance: HALOPERIDOL
  10. SENNA [Concomitant]
     Active Substance: SENNOSIDES
  11. FINASTERIDE [Concomitant]
     Active Substance: FINASTERIDE
  12. TRELEGY ELLIPTA [Concomitant]
     Active Substance: FLUTICASONE FUROATE\UMECLIDINIUM BROMIDE\VILANTEROL TRIFENATATE
  13. TAMSULOSIN [Concomitant]
     Active Substance: TAMSULOSIN
  14. GEMCITABINE [Concomitant]
     Active Substance: GEMCITABINE
  15. ELIQUIS [Concomitant]
     Active Substance: APIXABAN
  16. DOCETAXEL [Concomitant]
     Active Substance: DOCETAXEL
  17. VITAMIN B12 [Concomitant]
     Active Substance: CYANOCOBALAMIN
  18. VITAMIN D [Concomitant]
     Active Substance: VITAMIN D NOS
  19. KEYTRUDA [Concomitant]
     Active Substance: PEMBROLIZUMAB
  20. ASPIRIN CHILD 81 [Concomitant]

REACTIONS (1)
  - Death [None]

NARRATIVE: CASE EVENT DATE: 20250601
